FAERS Safety Report 17692657 (Version 1)
Quarter: 2020Q2

REPORT INFORMATION
  Report Type: Spontaneous
  Country: US (occurrence: US)
  Receive Date: 20200421
  Receipt Date: 20200421
  Transmission Date: 20200714
  Serious: Yes (Other)
  Sender: FDA-Public Use
  Company Number: None

PATIENT
  Age: 50 Year
  Sex: Female
  Weight: 68.49 kg

DRUGS (1)
  1. BUPRENORPHINE/NALOXONE 8/2MG [Suspect]
     Active Substance: BUPRENORPHINE HYDROCHLORIDE\NALOXONE HYDROCHLORIDE
     Indication: DRUG DEPENDENCE
     Dosage: ?          OTHER DOSE:8/2 FILMS;?
     Route: 060
     Dates: start: 20200225

REACTIONS (6)
  - Product substitution issue [None]
  - Hyperhidrosis [None]
  - Electrolyte imbalance [None]
  - Constipation [None]
  - Adverse drug reaction [None]
  - Insurance issue [None]

NARRATIVE: CASE EVENT DATE: 20200225
